FAERS Safety Report 5908947-1 (Version None)
Quarter: 2008Q4

REPORT INFORMATION
  Report Type: 
  Country: None (occurrence: None)
  Receive Date: 20081006
  Receipt Date: 20080926
  Transmission Date: 20090506
  Serious: Yes (Hospitalization)
  Sender: FDA-Public Use
  Company Number: JP-ASTRAZENECA-2008AP07291

PATIENT
  Age: 28133 Day
  Sex: Female

DRUGS (3)
  1. XYLOCAINE VISCOUS [Suspect]
     Indication: ENDOSCOPY
     Route: 048
     Dates: start: 20080910, end: 20080910
  2. SOLITA-T NO.3 [Concomitant]
     Route: 041
  3. SOLU-CORTEF [Concomitant]
     Route: 041

REACTIONS (1)
  - ANAPHYLACTIC SHOCK [None]
